FAERS Safety Report 9410404 (Version 4)
Quarter: 2013Q4

REPORT INFORMATION
  Report Type: Spontaneous
  Country: US (occurrence: US)
  Receive Date: 20130719
  Receipt Date: 20131125
  Transmission Date: 20140711
  Serious: Yes (Other)
  Sender: FDA-Public Use
  Company Number: US-GLAXOSMITHKLINE-A1034109A

PATIENT
  Age: 56 Year
  Sex: Female
  Weight: 103.2 kg

DRUGS (1)
  1. FLOLAN [Suspect]
     Indication: PULMONARY ARTERIAL HYPERTENSION
     Dosage: 35NGKM CONTINUOUS
     Route: 042
     Dates: start: 20080303

REACTIONS (3)
  - Cellulitis [Recovered/Resolved]
  - Sepsis [Recovered/Resolved]
  - Skin infection [Recovered/Resolved]
